FAERS Safety Report 5463104-0 (Version None)
Quarter: 2007Q3

REPORT INFORMATION
  Report Type: 
  Country: None (occurrence: None)
  Receive Date: 20070918
  Receipt Date: 20070918
  Transmission Date: 20080115
  Serious: Yes (Other)
  Sender: FDA-Public Use
  Company Number: None

PATIENT
  Age: 56 Year
  Sex: Female
  Weight: 72.5755 kg

DRUGS (1)
  1. REMICADE [Suspect]
     Indication: CROHN'S DISEASE
     Dosage: RECOMMENDED DOSE FOR CROHN'S SEE BELOW
     Dates: start: 20060411, end: 20060718

REACTIONS (9)
  - ARTHRALGIA [None]
  - ARTHRITIS ENTEROPATHIC [None]
  - DRUG HYPERSENSITIVITY [None]
  - IMMOBILE [None]
  - INFUSION RELATED REACTION [None]
  - MUSCULOSKELETAL PAIN [None]
  - MYALGIA [None]
  - PRURITUS [None]
  - URTICARIA [None]
